FAERS Safety Report 8516449-1 (Version None)
Quarter: 2012Q3

REPORT INFORMATION
  Report Type: 
  Country: None (occurrence: None)
  Receive Date: 20120718
  Receipt Date: 20120713
  Transmission Date: 20120928
  Serious: No
  Sender: FDA-Public Use
  Company Number: US-PFIZER INC-2012169691

PATIENT
  Sex: Male
  Weight: 77.1 kg

DRUGS (2)
  1. SOMAVERT [Suspect]
     Indication: PITUITARY TUMOUR BENIGN
     Dosage: UNK
     Route: 058
     Dates: end: 20120101
  2. DIOVAN [Concomitant]
     Indication: HYPERTENSION
     Dosage: UNK

REACTIONS (1)
  - PAIN IN EXTREMITY [None]
